FAERS Safety Report 8102885-4 (Version None)
Quarter: 2012Q1

REPORT INFORMATION
  Report Type: 
  Country: None (occurrence: None)
  Receive Date: 20120127
  Receipt Date: 20120117
  Transmission Date: 20120608
  Serious: Yes (Life-Threatening, Hospitalization, Other)
  Sender: FDA-Public Use
  Company Number: CL-374-2012

PATIENT
  Age: 64 Year
  Sex: Female

DRUGS (7)
  1. AMIODARONE HCL [Suspect]
     Indication: ATRIAL FIBRILLATION
     Dosage: 400MG BD
  2. WARFARIN SODIUM [Concomitant]
  3. MELOXICAM [Concomitant]
  4. ALENDRONATE SODIUM [Concomitant]
  5. PAROXETINE [Concomitant]
  6. OXYCODONE HCL [Concomitant]
  7. TETRACYCLINE [Concomitant]

REACTIONS (19)
  - CARDIAC ARREST [None]
  - ALANINE AMINOTRANSFERASE INCREASED [None]
  - TOXICITY TO VARIOUS AGENTS [None]
  - ASPARTATE AMINOTRANSFERASE INCREASED [None]
  - TORSADE DE POINTES [None]
  - HYPERTHYROIDISM [None]
  - EMPHYSEMA [None]
  - LIVER FUNCTION TEST ABNORMAL [None]
  - INTERSTITIAL LUNG DISEASE [None]
  - DRUG INTERACTION [None]
  - ATELECTASIS [None]
  - LUNG CONSOLIDATION [None]
  - ELECTROCARDIOGRAM QT PROLONGED [None]
  - BLOOD POTASSIUM DECREASED [None]
  - HEPATOTOXICITY [None]
  - OVERDOSE [None]
  - HYPOKALAEMIA [None]
  - WHITE BLOOD CELL COUNT INCREASED [None]
  - BLOOD ALKALINE PHOSPHATASE INCREASED [None]
